FAERS Safety Report 17054784 (Version 1)
Quarter: 2019Q4

REPORT INFORMATION
  Report Type: Report from Study
  Country: US (occurrence: US)
  Receive Date: 20191120
  Receipt Date: 20191120
  Transmission Date: 20200122
  Serious: Yes (Hospitalization, Other)
  Sender: FDA-Public Use
  Company Number: US-GILEAD-2019-0438083

PATIENT
  Age: 19 Year
  Sex: Female

DRUGS (1)
  1. AZTREONAM LYSINE [Suspect]
     Active Substance: AZTREONAM LYSINE
     Indication: CYSTIC FIBROSIS
     Dosage: 75MG VIA NEBULIZER 3 TIMESDAY, 28 DAYS ON AND 28 DAYS OFF
     Route: 055
     Dates: start: 201505

REACTIONS (4)
  - Nasopharyngitis [Unknown]
  - Cystic fibrosis [Recovering/Resolving]
  - Intentional dose omission [Recovered/Resolved]
  - Lung disorder [Unknown]

NARRATIVE: CASE EVENT DATE: 20191112
